FAERS Safety Report 18570100 (Version 1)
Quarter: 2020Q4

REPORT INFORMATION
  Report Type: Spontaneous
  Country: US (occurrence: US)
  Receive Date: 20201202
  Receipt Date: 20201202
  Transmission Date: 20210114
  Serious: Yes (Hospitalization)
  Sender: FDA-Public Use
  Company Number: None

PATIENT
  Age: 69 Year
  Sex: Male
  Weight: 59 kg

DRUGS (1)
  1. NAPROXEN (NAPROXEN 250MG TAB) [Suspect]
     Active Substance: NAPROXEN
     Indication: PAIN
     Route: 048
     Dates: start: 20201002, end: 20201002

REACTIONS (3)
  - Urticaria [None]
  - Rash [None]
  - Angioedema [None]

NARRATIVE: CASE EVENT DATE: 20201002
